FAERS Safety Report 14385769 (Version 1)
Quarter: 2018Q1

REPORT INFORMATION
  Report Type: Spontaneous
  Country: US (occurrence: US)
  Receive Date: 20180115
  Receipt Date: 20180115
  Transmission Date: 20180509
  Serious: Yes (Other)
  Sender: FDA-Public Use
  Company Number: US-SA-2017SA048017

PATIENT
  Age: 46 Year
  Sex: Female
  Weight: 72 kg

DRUGS (6)
  1. TAXOTERE [Suspect]
     Active Substance: DOCETAXEL
     Indication: BREAST CANCER
     Dosage: DOSE : VARYING
     Route: 051
     Dates: start: 20141231, end: 20141231
  2. ACTINOMYCIN D [Concomitant]
     Active Substance: DACTINOMYCIN
     Route: 065
  3. ALTRETAMINE [Concomitant]
     Active Substance: ALTRETAMINE
     Route: 065
  4. 5-FU [Concomitant]
     Active Substance: FLUOROURACIL
     Route: 065
  5. AMSACRINE [Concomitant]
     Active Substance: AMSACRINE
     Route: 065
  6. TAXOTERE [Suspect]
     Active Substance: DOCETAXEL
     Indication: BREAST CANCER
     Dosage: DOSE: VARYING DOSE
     Route: 051
     Dates: start: 20140728, end: 20140728

REACTIONS (6)
  - Impaired quality of life [Unknown]
  - Psychological trauma [Unknown]
  - Alopecia [Not Recovered/Not Resolved]
  - Anxiety [Unknown]
  - Pain [Unknown]
  - Emotional distress [Unknown]

NARRATIVE: CASE EVENT DATE: 20140815
